FAERS Safety Report 7415740-X (Version None)
Quarter: 2011Q2

REPORT INFORMATION
  Report Type: 
  Country: None (occurrence: None)
  Receive Date: 20110414
  Receipt Date: 20110404
  Transmission Date: 20111010
  Serious: Yes (Other)
  Sender: FDA-Public Use
  Company Number: US-CEPHALON-US019873

PATIENT
  Age: 45 Year
  Sex: Male
  Weight: 170 kg

DRUGS (11)
  1. PERCOCET [Concomitant]
     Dosage: 7.5MG/325MG 5D PRN
     Route: 048
  2. ACTIQ [Suspect]
     Indication: BACK PAIN
     Route: 002
     Dates: start: 20061001
  3. PERCOCET [Concomitant]
     Indication: CANCER PAIN
     Dosage: 10MG/325MG 5D PRN
     Route: 048
  4. OXYCONTIN [Concomitant]
     Indication: BACK PAIN
     Route: 048
  5. LIDOCAINE [Concomitant]
  6. VISTARIL [Concomitant]
  7. ACTIQ [Suspect]
     Indication: NERVE INJURY
     Route: 002
     Dates: start: 20040916, end: 20081101
  8. VALIUM [Concomitant]
  9. OXYCONTIN [Concomitant]
     Route: 048
  10. ACTIQ [Suspect]
     Indication: ARTHRALGIA
  11. OXYCONTIN [Concomitant]
     Route: 048

REACTIONS (20)
  - CARDIAC DISORDER [None]
  - HYPERTENSION [None]
  - WEIGHT DECREASED [None]
  - DIABETES MELLITUS [None]
  - TOOTH LOSS [None]
  - INFECTION [None]
  - HEPATIC ENZYME ABNORMAL [None]
  - DRUG PRESCRIBING ERROR [None]
  - AGEUSIA [None]
  - DENTAL CARIES [None]
  - GLOSSITIS [None]
  - ORAL PAIN [None]
  - DRUG DEPENDENCE [None]
  - TOOTH FRACTURE [None]
  - GASTROINTESTINAL HAEMORRHAGE [None]
  - MENTAL IMPAIRMENT [None]
  - SLEEP APNOEA SYNDROME [None]
  - GYNAECOMASTIA [None]
  - ANDROGEN DEFICIENCY [None]
  - WEIGHT INCREASED [None]
